FAERS Safety Report 7649206-9 (Version None)
Quarter: 2011Q3

REPORT INFORMATION
  Report Type: 
  Country: None (occurrence: None)
  Receive Date: 20110726
  Receipt Date: 20090810
  Transmission Date: 20111222
  Serious: Yes (Disabling)
  Sender: FDA-Public Use
  Company Number: APP200900107

PATIENT
  Age: 16 Year
  Sex: Female
  Weight: 63.5036 kg

DRUGS (8)
  1. ANCEF [Concomitant]
  2. GENTAMICIN [Concomitant]
  3. PERCOCET [Concomitant]
  4. MORPHINE [Concomitant]
  5. BREG PAIN CARE PUMP [Suspect]
     Indication: ARTHRALGIA
     Dates: start: 20060213
  6. SENSORCAINE [Suspect]
     Indication: ARTHRALGIA
     Dosage: 200 ML, 2 ML HOUR, INTRA-ARTICULAR ; + 10 MG MORPHINE SUPRAPATELLAR POUCH
     Route: 013
     Dates: start: 20060213
  7. SENSORCAINE [Suspect]
     Indication: ARTHRALGIA
     Dosage: 200 ML, 2 ML HOUR, INTRA-ARTICULAR ; + 10 MG MORPHINE SUPRAPATELLAR POUCH
     Route: 013
     Dates: start: 20060213
  8. DILAUDID [Concomitant]

REACTIONS (6)
  - MUSCULOSKELETAL PAIN [None]
  - JOINT EFFUSION [None]
  - OSTEOARTHRITIS [None]
  - LIGAMENT LAXITY [None]
  - CHONDROLYSIS [None]
  - CHONDROMALACIA [None]
